FAERS Safety Report 9227587 (Version 3)
Quarter: 2014Q1

REPORT INFORMATION
  Report Type: Spontaneous
  Country: FR (occurrence: None)
  Receive Date: 20130410
  Receipt Date: 20140310
  Transmission Date: 20141002
  Serious: Yes (Other)
  Sender: FDA-Public Use
  Company Number: 1625895

PATIENT
  Age: 53 Year
  Sex: Female
  Weight: 57 kg

DRUGS (2)
  1. CARBOPLATIN [Suspect]
     Indication: OVARIAN EPITHELIAL CANCER
     Route: 041
     Dates: start: 20121121, end: 20121220
  2. (GEMCITABINE) [Concomitant]
     Dates: start: 20121121, end: 20121220

REACTIONS (3)
  - Type I hypersensitivity [None]
  - Anaphylactoid reaction [None]
  - Skin test positive [None]
